FAERS Safety Report 13054891 (Version 4)
Quarter: 2017Q3

REPORT INFORMATION
  Report Type: Spontaneous
  Country: US (occurrence: US)
  Receive Date: 20161222
  Receipt Date: 20170818
  Transmission Date: 20171127
  Serious: No
  Sender: FDA-Public Use
  Company Number: US-PFIZER INC-2016577724

PATIENT
  Age: 68 Year
  Sex: Male

DRUGS (1)
  1. DOPAMINE HCL [Suspect]
     Active Substance: DOPAMINE HYDROCHLORIDE
     Indication: PARKINSON^S DISEASE
     Dosage: UNK

REACTIONS (2)
  - Off label use [Unknown]
  - Parkinsonian gait [Unknown]
